FAERS Safety Report 4408054-3 (Version None)
Quarter: 2004Q3

REPORT INFORMATION
  Report Type: 
  Country: None (occurrence: None)
  Receive Date: 20040726
  Receipt Date: 20030814
  Transmission Date: 20050211
  Serious: Yes (Death, Other)
  Sender: FDA-Public Use
  Company Number: US-MERCK-0308USA01618

PATIENT
  Age: 78 Year
  Sex: Female

DRUGS (7)
  1. NORVASC [Concomitant]
     Route: 065
  2. CLONAZEPAM [Concomitant]
     Route: 065
  3. LANOXIN [Concomitant]
     Route: 065
  4. VASOTEC [Concomitant]
     Route: 048
  5. PRIMIDONE [Concomitant]
     Route: 065
  6. VIOXX [Suspect]
     Indication: PAIN
     Route: 048
     Dates: start: 20000131, end: 20010514
  7. ZOLOFT [Concomitant]
     Route: 065

REACTIONS (11)
  - ATHEROSCLEROSIS [None]
  - ATRIAL FIBRILLATION [None]
  - CARDIAC DISORDER [None]
  - CEREBRAL INFARCTION [None]
  - COMA [None]
  - EPIGASTRIC DISCOMFORT [None]
  - GASTROOESOPHAGEAL REFLUX DISEASE [None]
  - HUMERUS FRACTURE [None]
  - LEUKOCYTOSIS [None]
  - VOMITING [None]
  - WHITE BLOOD CELL COUNT INCREASED [None]
